FAERS Safety Report 24160072 (Version 1)
Quarter: 2024Q3

REPORT INFORMATION
  Report Type: Spontaneous
  Country: US (occurrence: US)
  Receive Date: 20240801
  Receipt Date: 20240801
  Transmission Date: 20241016
  Serious: Yes (Other)
  Sender: STRIDES
  Company Number: US-STRIDES ARCOLAB LIMITED-2024SP009494

PATIENT
  Sex: Female

DRUGS (7)
  1. ALBENDAZOLE [Suspect]
     Active Substance: ALBENDAZOLE
     Indication: Product used for unknown indication
     Dosage: UNK
     Route: 064
     Dates: start: 2019
  2. OMEPRAZOLE [Suspect]
     Active Substance: OMEPRAZOLE
     Indication: Product used for unknown indication
     Dosage: UNK
     Route: 064
     Dates: start: 2019
  3. ARTESUNATE [Suspect]
     Active Substance: ARTESUNATE
     Indication: Product used for unknown indication
     Dosage: UNK
     Route: 064
     Dates: start: 2019
  4. CEFTRIAXONE [Suspect]
     Active Substance: CEFTRIAXONE\CEFTRIAXONE SODIUM
     Indication: Product used for unknown indication
     Dosage: UNK
     Route: 064
     Dates: start: 2019
  5. ACETAMINOPHEN [Suspect]
     Active Substance: ACETAMINOPHEN
     Indication: Product used for unknown indication
     Dosage: UNK
     Route: 064
     Dates: start: 2019
  6. ERVEBO [Suspect]
     Active Substance: RECOMBINANT ZAIRE EBOLAVIRUS KIKWIT-95 ENVELOPE GLYCOPROTEIN MODIFIED VESICULAR STOMATITIS VIRUS
     Indication: Product used for unknown indication
     Dosage: UNK
     Route: 064
     Dates: start: 201909, end: 2019
  7. EBANGA [Suspect]
     Active Substance: ANSUVIMAB-ZYKL
     Indication: Product used for unknown indication
     Dosage: UNK (PATIENT^S MOTHER RECEIVED 50 MG/KG IN SINGLE DOSE)
     Route: 064
     Dates: start: 2019, end: 2019

REACTIONS (3)
  - Premature baby [Unknown]
  - Low birth weight baby [Unknown]
  - Foetal exposure during pregnancy [Unknown]

NARRATIVE: CASE EVENT DATE: 20190101
